FAERS Safety Report 16222059 (Version 1)
Quarter: 2019Q2

REPORT INFORMATION
  Report Type: Spontaneous
  Country: PT (occurrence: PT)
  Receive Date: 20190422
  Receipt Date: 20190422
  Transmission Date: 20190711
  Serious: Yes (Hospitalization, Other)
  Sender: FDA-Public Use
  Company Number: PT-ALEMBIC PHARMACUETICALS LIMITED-2019SCAL000230

PATIENT

DRUGS (3)
  1. BUPROPION HYDROCHLORIDE. [Suspect]
     Active Substance: BUPROPION HYDROCHLORIDE
     Dosage: 16 TABLETS
  2. VALPROATE [Concomitant]
     Active Substance: VALPROIC ACID
     Indication: AFFECTIVE DISORDER
     Dosage: 500 MILLIGRAM, OD
  3. BUPROPION HYDROCHLORIDE. [Suspect]
     Active Substance: BUPROPION HYDROCHLORIDE
     Indication: DRUG DEPENDENCE
     Dosage: 300 MILLIGRAM, QD

REACTIONS (10)
  - Dyspnoea [Recovered/Resolved]
  - Overdose [Recovered/Resolved]
  - Disorientation [Recovered/Resolved]
  - Toxicity to various agents [Recovered/Resolved]
  - Confusional state [Recovered/Resolved]
  - Methaemoglobinaemia [Recovered/Resolved]
  - Fatigue [Recovered/Resolved]
  - Cyanosis central [Recovered/Resolved]
  - Heart rate increased [Recovered/Resolved]
  - Generalised tonic-clonic seizure [Recovered/Resolved]
